FAERS Safety Report 22090136 (Version 1)
Quarter: 2023Q1

REPORT INFORMATION
  Report Type: Spontaneous
  Country: US (occurrence: None)
  Receive Date: 20230313
  Receipt Date: 20230313
  Transmission Date: 20230418
  Serious: Yes (Hospitalization, Other)
  Sender: FDA-Public Use
  Company Number: None

PATIENT
  Age: 35 Year
  Sex: Female
  Weight: 70 kg

DRUGS (1)
  1. CEFAZOLIN [Suspect]
     Active Substance: CEFAZOLIN
     Indication: Peritoneal dialysis
     Dosage: OTHER FREQUENCY : EVERY TREATMENT;?
     Route: 033
     Dates: start: 20230222, end: 20230226

REACTIONS (8)
  - Nausea [None]
  - Pruritus [None]
  - Injection related reaction [None]
  - Feeling abnormal [None]
  - Dyspnoea [None]
  - Tinnitus [None]
  - Therapy cessation [None]
  - Drug hypersensitivity [None]

NARRATIVE: CASE EVENT DATE: 20230224
